FAERS Safety Report 24754523 (Version 2)
Quarter: 2025Q1

REPORT INFORMATION
  Report Type: Spontaneous
  Country: US (occurrence: US)
  Receive Date: 20241219
  Receipt Date: 20250102
  Transmission Date: 20250408
  Serious: Yes (Other)
  Sender: TEVA
  Company Number: US-TEVA-VS-3274601

PATIENT
  Age: 12 Month
  Sex: Female

DRUGS (5)
  1. MYCOPHENOLATE MOFETIL [Suspect]
     Active Substance: MYCOPHENOLATE MOFETIL
     Indication: Opsoclonus myoclonus
     Route: 065
  2. CORTICOTROPIN [Suspect]
     Active Substance: CORTICOTROPIN
     Indication: Opsoclonus myoclonus
     Route: 065
  3. CYCLOPHOSPHAMIDE [Concomitant]
     Active Substance: CYCLOPHOSPHAMIDE
     Indication: Opsoclonus myoclonus
     Route: 065
  4. RITUXIMAB [Concomitant]
     Active Substance: RITUXIMAB
     Indication: Opsoclonus myoclonus
     Route: 065
  5. IMMUNOGLOBULINS [Concomitant]
     Indication: Opsoclonus myoclonus
     Route: 042

REACTIONS (4)
  - Irritability [Unknown]
  - Cushingoid [Unknown]
  - Treatment noncompliance [Unknown]
  - Weight increased [Unknown]
